FAERS Safety Report 11095920 (Version 1)
Quarter: 2015Q2

REPORT INFORMATION
  Report Type: Spontaneous
  Country: US (occurrence: US)
  Receive Date: 20150507
  Receipt Date: 20150507
  Transmission Date: 20150821
  Serious: Yes (Other)
  Sender: FDA-Public Use
  Company Number: US-BEH-2013037004

PATIENT
  Age: 69 Year
  Sex: Male

DRUGS (1)
  1. BERINERT [Suspect]
     Active Substance: HUMAN C1-ESTERASE INHIBITOR
     Indication: PROPHYLAXIS
     Dosage: 500 UNITS; 1500 WEEKLY; STARTED 25-FEB-2013-ONGOING
     Route: 042
     Dates: start: 20130712

REACTIONS (6)
  - Burning sensation [Recovered/Resolved]
  - Drug ineffective for unapproved indication [Recovered/Resolved]
  - Throat tightness [Recovered/Resolved]
  - Paraesthesia oral [Recovered/Resolved]
  - Abdominal distension [Recovered/Resolved]
  - Angioedema [Recovered/Resolved]

NARRATIVE: CASE EVENT DATE: 20130716
